FAERS Safety Report 24295331 (Version 1)
Quarter: 2024Q3

REPORT INFORMATION
  Report Type: Report from Study
  Country: JP (occurrence: JP)
  Receive Date: 20240907
  Receipt Date: 20240907
  Transmission Date: 20241017
  Serious: Yes (Death)
  Sender: SHIONOGI
  Company Number: JP-shionogi-202403461_FTR_P_1

PATIENT

DRUGS (6)
  1. FETROJA [Suspect]
     Active Substance: CEFIDEROCOL SULFATE TOSYLATE
     Indication: Pneumonia
     Dosage: 1.5 G, PRN8
     Route: 041
     Dates: start: 20240427, end: 20240427
  2. RIFADIN [Concomitant]
     Active Substance: RIFAMPIN
     Dosage: UNK
     Route: 048
  3. CLARITHROMYCIN [Concomitant]
     Active Substance: CLARITHROMYCIN
     Dosage: UNK
     Route: 048
  4. SITAFLOXACIN [Concomitant]
     Active Substance: SITAFLOXACIN
     Dosage: UNK
     Route: 048
  5. ADALAT CC [Concomitant]
     Active Substance: NIFEDIPINE
     Dosage: UNK
     Route: 048
  6. FILGOTINIB [Concomitant]
     Active Substance: FILGOTINIB
     Dosage: UNK
     Route: 048

REACTIONS (2)
  - Pneumonia [Fatal]
  - Off label use [Unknown]

NARRATIVE: CASE EVENT DATE: 20240427
